FAERS Safety Report 19543588 (Version 13)
Quarter: 2022Q2

REPORT INFORMATION
  Report Type: Spontaneous
  Country: GB (occurrence: GB)
  Receive Date: 20210714
  Receipt Date: 20220606
  Transmission Date: 20220721
  Serious: Yes (Death, Hospitalization, Other)
  Sender: FDA-Public Use
  Company Number: GB-CELLTRION INC.-2021GB001366

PATIENT
  Age: 33 Year
  Sex: Female

DRUGS (197)
  1. DOCETAXEL [Suspect]
     Active Substance: DOCETAXEL
     Indication: HER2 positive breast cancer
     Dosage: 130 MG, Q3W
     Route: 042
     Dates: start: 20160701, end: 20160727
  2. DOCETAXEL [Suspect]
     Active Substance: DOCETAXEL
     Indication: Breast cancer metastatic
     Dosage: 108 MG, Q3W
     Route: 042
     Dates: start: 20161111, end: 20161111
  3. DOCETAXEL [Suspect]
     Active Substance: DOCETAXEL
     Dosage: 110 MG, Q3W
     Route: 042
     Dates: start: 20160907, end: 20161021
  4. DOCETAXEL [Suspect]
     Active Substance: DOCETAXEL
     Dosage: 500 MG, BID
     Route: 058
     Dates: start: 20170617
  5. DOCETAXEL [Suspect]
     Active Substance: DOCETAXEL
     Dosage: 1 G
     Route: 042
     Dates: start: 20170616
  6. DOCETAXEL [Suspect]
     Active Substance: DOCETAXEL
     Dosage: UNK UNK, Q3W
     Route: 042
     Dates: start: 20160907, end: 20161021
  7. TAMOXIFEN CITRATE [Suspect]
     Active Substance: TAMOXIFEN CITRATE
     Indication: HER2 positive breast cancer
     Dosage: UNK
     Route: 048
     Dates: start: 20170623, end: 20171228
  8. TAMOXIFEN CITRATE [Suspect]
     Active Substance: TAMOXIFEN CITRATE
     Indication: Breast cancer metastatic
     Dosage: 20 MG, QD (MOST RECENT DOSE ON 05/JUN/2018)
     Route: 048
     Dates: start: 20180213, end: 20180605
  9. ANASTROZOLE [Suspect]
     Active Substance: ANASTROZOLE
     Indication: Breast cancer metastatic
     Dosage: 1 MG, QD
     Route: 048
     Dates: start: 20180606, end: 20190904
  10. ANASTROZOLE [Suspect]
     Active Substance: ANASTROZOLE
     Indication: HER2 positive breast cancer
     Dosage: UNK
     Route: 048
  11. TRASTUZUMAB [Suspect]
     Active Substance: TRASTUZUMAB
     Indication: HER2 positive breast cancer
     Dosage: 567 MG, QD (LOADING DOSE)
     Route: 042
     Dates: start: 20160609, end: 20160609
  12. TRASTUZUMAB [Suspect]
     Active Substance: TRASTUZUMAB
     Dosage: 451.5 MG, TIW
     Route: 042
     Dates: start: 20170428, end: 20170519
  13. TRASTUZUMAB [Suspect]
     Active Substance: TRASTUZUMAB
     Dosage: 441 MG, TIW
     Route: 042
     Dates: start: 20160907, end: 20160926
  14. TRASTUZUMAB [Suspect]
     Active Substance: TRASTUZUMAB
     Dosage: 451.5 MG, TIW
     Route: 042
     Dates: start: 20161111, end: 20170519
  15. TRASTUZUMAB [Suspect]
     Active Substance: TRASTUZUMAB
     Dosage: 420 MG, TIW
     Route: 042
     Dates: start: 20170224, end: 20170407
  16. TRASTUZUMAB [Suspect]
     Active Substance: TRASTUZUMAB
     Dosage: 451.5 MG, Q3W
     Route: 042
     Dates: start: 20161202, end: 20170203
  17. TRASTUZUMAB [Suspect]
     Active Substance: TRASTUZUMAB
     Dosage: 472.5 MG, Q3W
     Route: 042
     Dates: start: 20170519, end: 20171228
  18. TRASTUZUMAB [Suspect]
     Active Substance: TRASTUZUMAB
     Dosage: 451.5 MG, Q3W (EVERY 3 WEEKS)
     Route: 042
     Dates: start: 20161021, end: 20161111
  19. TRASTUZUMAB [Suspect]
     Active Substance: TRASTUZUMAB
     Dosage: 472.5 MG, TIW
     Route: 042
     Dates: start: 20170612, end: 20171228
  20. TRASTUZUMAB [Suspect]
     Active Substance: TRASTUZUMAB
     Dosage: 420 MG, TIW
     Route: 042
     Dates: start: 20160907, end: 20160926
  21. TRASTUZUMAB [Suspect]
     Active Substance: TRASTUZUMAB
     Dosage: 441 MG
     Route: 042
     Dates: start: 20160202, end: 20170203
  22. TRASTUZUMAB [Suspect]
     Active Substance: TRASTUZUMAB
     Dosage: 430.5 MG, TIW
     Route: 042
     Dates: start: 20170224, end: 20170407
  23. TRASTUZUMAB [Suspect]
     Active Substance: TRASTUZUMAB
     Dosage: UNK
  24. TRASTUZUMAB [Suspect]
     Active Substance: TRASTUZUMAB
     Dosage: 420 MG, Q3W
     Route: 042
     Dates: start: 20170224, end: 20170407
  25. TRASTUZUMAB [Suspect]
     Active Substance: TRASTUZUMAB
     Dosage: 567 MG, QD
     Route: 041
     Dates: start: 20160609, end: 20160609
  26. TRASTUZUMAB [Suspect]
     Active Substance: TRASTUZUMAB
     Dosage: 451.5 MG, Q3W
     Route: 042
     Dates: start: 20161111, end: 20170519
  27. TRASTUZUMAB [Suspect]
     Active Substance: TRASTUZUMAB
     Dosage: 420 MG, Q3W
     Route: 042
     Dates: start: 20161202, end: 20170203
  28. TRASTUZUMAB [Suspect]
     Active Substance: TRASTUZUMAB
     Dosage: 420 MG, Q3W
     Route: 042
     Dates: start: 20160907, end: 20160926
  29. TRASTUZUMAB [Suspect]
     Active Substance: TRASTUZUMAB
     Dosage: 441 MG
     Route: 042
     Dates: start: 20160202
  30. TRASTUZUMAB [Suspect]
     Active Substance: TRASTUZUMAB
     Dosage: 451.5 MG, TIW (3 TIMES/WK)
     Route: 042
     Dates: start: 20161202, end: 20170203
  31. TRASTUZUMAB [Suspect]
     Active Substance: TRASTUZUMAB
     Dosage: 441 MG, Q3W
     Route: 042
     Dates: start: 20160907, end: 20160926
  32. TRASTUZUMAB [Suspect]
     Active Substance: TRASTUZUMAB
     Dosage: 280 MG, Q3W
     Route: 042
     Dates: start: 20180131, end: 20180131
  33. TRASTUZUMAB [Suspect]
     Active Substance: TRASTUZUMAB
     Dosage: 280 MG
     Dates: start: 20180131, end: 20180131
  34. ENHERTU [Suspect]
     Active Substance: FAM-TRASTUZUMAB DERUXTECAN-NXKI
     Dosage: 452 MG, ONCE EVERY 3 WK (INJECTION, POWDER, LYOPHILIZED, FOR SOLUTION)
     Route: 042
     Dates: start: 20161021, end: 20161111
  35. ENHERTU [Suspect]
     Active Substance: FAM-TRASTUZUMAB DERUXTECAN-NXKI
     Dosage: 452 MG, ONCE EVERY 3 WK
     Route: 042
     Dates: start: 20161111, end: 20170519
  36. ENHERTU [Suspect]
     Active Substance: FAM-TRASTUZUMAB DERUXTECAN-NXKI
     Dosage: 473 MG, Q3W (ONCE EVERY 3 WK)
     Route: 042
     Dates: start: 20170428, end: 20170519
  37. ENHERTU [Suspect]
     Active Substance: FAM-TRASTUZUMAB DERUXTECAN-NXKI
     Dosage: 473 MG, Q3W (ONCE EVERY 3 WK)
     Route: 042
     Dates: start: 20170519, end: 20171228
  38. ENHERTU [Suspect]
     Active Substance: FAM-TRASTUZUMAB DERUXTECAN-NXKI
     Dosage: 451.5 MG, Q3W (EVERY 3 WEEKS)
     Route: 042
     Dates: start: 20161111, end: 20170519
  39. ENHERTU [Suspect]
     Active Substance: FAM-TRASTUZUMAB DERUXTECAN-NXKI
     Dosage: 420 MG, Q3W (ONCE EVERY 3 WK)
     Route: 042
     Dates: start: 20160907, end: 20160926
  40. ENHERTU [Suspect]
     Active Substance: FAM-TRASTUZUMAB DERUXTECAN-NXKI
     Dosage: 420 MG, Q3W (ONCE EVERY 3 WK)
     Route: 042
     Dates: start: 20160701, end: 20160727
  41. ENHERTU [Suspect]
     Active Substance: FAM-TRASTUZUMAB DERUXTECAN-NXKI
     Dosage: 451.5 MG, Q3W (EVERY THREE WEEKS)
     Route: 042
     Dates: start: 20180131
  42. ENHERTU [Suspect]
     Active Substance: FAM-TRASTUZUMAB DERUXTECAN-NXKI
     Dosage: 420 MG, Q3W (ONCE EVERY 3 WK)
     Route: 042
     Dates: start: 20161202, end: 20170203
  43. ENHERTU [Suspect]
     Active Substance: FAM-TRASTUZUMAB DERUXTECAN-NXKI
     Dosage: 567 MG, QD (LOADING DOSE: INJECTION, POWDER, LYOPHILIZED, FOR SOLUTION)
     Route: 042
     Dates: start: 20170612, end: 20171228
  44. ENHERTU [Suspect]
     Active Substance: FAM-TRASTUZUMAB DERUXTECAN-NXKI
     Dosage: 420 MG, Q3W (ONCE EVERY 3 WK)
     Route: 042
     Dates: start: 20170224, end: 20170407
  45. ENHERTU [Suspect]
     Active Substance: FAM-TRASTUZUMAB DERUXTECAN-NXKI
     Dosage: 567 MG, QD
     Route: 042
     Dates: start: 20160609, end: 20160609
  46. ENHERTU [Suspect]
     Active Substance: FAM-TRASTUZUMAB DERUXTECAN-NXKI
     Dosage: 451.5 MG, EVERY 3 WEEKS; INJECTION, POWDER, LYOPHILIZED, FOR SOLUTION
     Route: 042
     Dates: start: 20180831
  47. ENHERTU [Suspect]
     Active Substance: FAM-TRASTUZUMAB DERUXTECAN-NXKI
     Dosage: 420 MG, Q3W (ONCE EVERY 3 WK)
     Route: 042
  48. PERTUZUMAB [Suspect]
     Active Substance: PERTUZUMAB
     Indication: HER2 positive breast cancer
     Dosage: 840 MG (LOADING DOSE)
     Route: 042
     Dates: start: 20160609, end: 20160609
  49. PERTUZUMAB [Suspect]
     Active Substance: PERTUZUMAB
     Indication: Breast cancer metastatic
     Dosage: 420 MG, Q3W (INFUSION, SOLUTION)
     Route: 042
     Dates: start: 20160701, end: 20171228
  50. ADO-TRASTUZUMAB EMTANSINE [Suspect]
     Active Substance: ADO-TRASTUZUMAB EMTANSINE
     Indication: HER2 positive breast cancer
     Dosage: 280 MG, Q3W
     Route: 042
     Dates: start: 20180131, end: 20180131
  51. ADO-TRASTUZUMAB EMTANSINE [Suspect]
     Active Substance: ADO-TRASTUZUMAB EMTANSINE
     Indication: Breast cancer metastatic
     Dosage: UNK
     Route: 065
  52. TAMOXIFEN [Suspect]
     Active Substance: TAMOXIFEN
     Dosage: UNK
     Dates: start: 20180213, end: 20180605
  53. TAMOXIFEN [Suspect]
     Active Substance: TAMOXIFEN
     Dosage: UNK
     Dates: start: 20170623, end: 20171228
  54. CALCIUM CARBONATE\CHOLECALCIFEROL [Concomitant]
     Active Substance: CALCIUM CARBONATE\CHOLECALCIFEROL
     Dosage: UNK, QD (0.5 UNK, QD)
     Route: 048
     Dates: start: 20170621
  55. CALCIUM CARBONATE\CHOLECALCIFEROL [Concomitant]
     Active Substance: CALCIUM CARBONATE\CHOLECALCIFEROL
     Dosage: 0.5 UNK, QD (2, PER 0.5 DAY (DOSE FORM: 230)
     Route: 048
     Dates: start: 20170621
  56. AMOXICILLIN [Concomitant]
     Active Substance: AMOXICILLIN
     Dosage: UNK, QD
     Route: 048
     Dates: start: 201712, end: 201712
  57. CHLORPHENIRAMINE MALEATE [Concomitant]
     Active Substance: CHLORPHENIRAMINE MALEATE
     Indication: Product used for unknown indication
     Dosage: 10 MG
     Route: 042
     Dates: start: 20160907, end: 20160907
  58. CHLORPHENIRAMINE MALEATE [Concomitant]
     Active Substance: CHLORPHENIRAMINE MALEATE
     Dosage: 10 MG
     Route: 042
     Dates: start: 20160928, end: 20170724
  59. COTRIMOXAZOLE [Concomitant]
     Active Substance: SULFAMETHOXAZOLE\TRIMETHOPRIM
     Dosage: 483 MG, QD
     Route: 048
     Dates: start: 20180131, end: 20180131
  60. CHLOROFORM\CODEINE PHOSPHATE\DRIMIA MARITIMA BULB [Concomitant]
     Active Substance: CHLOROFORM\CODEINE PHOSPHATE\DRIMIA MARITIMA BULB
     Dosage: 10 ML, QD
     Route: 048
     Dates: start: 20170619, end: 20170619
  61. ENOXAPARIN SODIUM [Concomitant]
     Active Substance: ENOXAPARIN SODIUM
     Dosage: 1200 MG, QD
     Route: 058
     Dates: start: 20180212, end: 20180212
  62. ENOXAPARIN SODIUM [Concomitant]
     Active Substance: ENOXAPARIN SODIUM
     Dosage: UNK UNK, QD
     Route: 058
     Dates: start: 20180214, end: 20180218
  63. ENOXAPARIN SODIUM [Concomitant]
     Active Substance: ENOXAPARIN SODIUM
     Dosage: 40 MG, QD
     Route: 058
     Dates: start: 20170616, end: 20170623
  64. ENOXAPARIN SODIUM [Concomitant]
     Active Substance: ENOXAPARIN SODIUM
     Dosage: 40 MG, QD
     Route: 058
     Dates: start: 20180214, end: 20180218
  65. ENOXAPARIN SODIUM [Concomitant]
     Active Substance: ENOXAPARIN SODIUM
     Dosage: 40 MG, QD
     Route: 058
     Dates: start: 20160817, end: 20160914
  66. ENOXAPARIN SODIUM [Concomitant]
     Active Substance: ENOXAPARIN SODIUM
     Dosage: UNK
     Dates: start: 20160723, end: 20160723
  67. ENOXAPARIN SODIUM [Concomitant]
     Active Substance: ENOXAPARIN SODIUM
     Dosage: UNK
     Dates: start: 20160825, end: 20160914
  68. ENOXAPARIN SODIUM [Concomitant]
     Active Substance: ENOXAPARIN SODIUM
     Dosage: 40 MG, QD
     Route: 058
     Dates: start: 20180105, end: 20180117
  69. FILGRASTIM [Concomitant]
     Active Substance: FILGRASTIM
     Indication: Product used for unknown indication
     Dosage: 300 UG
     Route: 065
     Dates: start: 20160731, end: 20161112
  70. HYDROCORTISONE [Concomitant]
     Active Substance: HYDROCORTISONE
     Indication: Product used for unknown indication
     Dosage: 100 MG, QD
     Route: 042
     Dates: start: 20160907, end: 20160907
  71. HYDROCORTISONE [Concomitant]
     Active Substance: HYDROCORTISONE
     Dosage: 100 MG
     Route: 042
     Dates: start: 20160928
  72. HYDROCORTISONE [Concomitant]
     Active Substance: HYDROCORTISONE
     Dosage: 1 G
     Route: 042
     Dates: start: 20170616, end: 20170616
  73. HYDROCORTISONE [Concomitant]
     Active Substance: HYDROCORTISONE
     Dosage: 500 MG PER 0.5 DAY
     Route: 058
     Dates: start: 20170617
  74. LEVETIRACETAM [Concomitant]
     Active Substance: LEVETIRACETAM
     Indication: Product used for unknown indication
     Dosage: 1 G, QD
     Route: 042
     Dates: start: 20170616, end: 20170616
  75. LEVETIRACETAM [Concomitant]
     Active Substance: LEVETIRACETAM
     Dosage: 500 MG, BID
     Route: 048
     Dates: start: 20170617
  76. LEVETIRACETAM [Concomitant]
     Active Substance: LEVETIRACETAM
     Dosage: UNK
     Dates: start: 20161009, end: 20161017
  77. LEVETIRACETAM [Concomitant]
     Active Substance: LEVETIRACETAM
     Dosage: 1000 MG, QD
     Route: 058
     Dates: start: 20170617
  78. LEVETIRACETAM [Concomitant]
     Active Substance: LEVETIRACETAM
     Dosage: 500 MG (500 MG PER 0.5 DAY)
     Route: 058
     Dates: start: 20170617
  79. LEVETIRACETAM [Concomitant]
     Active Substance: LEVETIRACETAM
     Dosage: 1 G, QD (EVERY 1 DAY)
     Route: 048
     Dates: start: 20170617
  80. LEVOMEPROMAZINE [Concomitant]
     Active Substance: LEVOMEPROMAZINE
     Dosage: 6.25 MG
     Route: 058
     Dates: start: 20170617, end: 20170617
  81. LEVOMEPROMAZINE [Concomitant]
     Active Substance: LEVOMEPROMAZINE
     Dosage: UNK
     Route: 065
     Dates: start: 20170908, end: 20170925
  82. LEVOMEPROMAZINE [Concomitant]
     Active Substance: LEVOMEPROMAZINE
     Dosage: 6 MG
     Route: 058
     Dates: start: 20170617, end: 20170617
  83. LEVOMEPROMAZINE [Concomitant]
     Active Substance: LEVOMEPROMAZINE
     Dosage: UNK
     Route: 065
     Dates: start: 20170908, end: 20170925
  84. LEVOMEPROMAZINE [Concomitant]
     Active Substance: LEVOMEPROMAZINE
     Dosage: 6 MG, QD
     Route: 058
  85. MEROPENEM [Concomitant]
     Active Substance: MEROPENEM
     Indication: Product used for unknown indication
     Dosage: 1 G
     Route: 042
     Dates: start: 20160809, end: 20160817
  86. METOCLOPRAMIDE [Concomitant]
     Active Substance: METOCLOPRAMIDE
     Dosage: 10 MG
     Route: 048
     Dates: start: 20160610, end: 20161111
  87. METOCLOPRAMIDE [Concomitant]
     Active Substance: METOCLOPRAMIDE
     Dosage: 10 MG
     Route: 048
     Dates: start: 20180131
  88. METOCLOPRAMIDE [Concomitant]
     Active Substance: METOCLOPRAMIDE
     Dosage: 10 MG
     Route: 042
     Dates: start: 20180106, end: 20180106
  89. METOCLOPRAMIDE [Concomitant]
     Active Substance: METOCLOPRAMIDE
     Dosage: 10 MG
     Route: 048
     Dates: start: 20160610, end: 20161111
  90. METOCLOPRAMIDE [Concomitant]
     Active Substance: METOCLOPRAMIDE
     Dosage: 10 MG
     Route: 042
     Dates: start: 20180106, end: 20180106
  91. RANITIDINE [Concomitant]
     Active Substance: RANITIDINE
     Indication: Product used for unknown indication
     Dosage: 50 MG
     Route: 048
     Dates: start: 20170617, end: 20170618
  92. ALBUTEROL [Concomitant]
     Active Substance: ALBUTEROL
     Dosage: UNK
     Route: 055
     Dates: start: 20160822, end: 20160908
  93. ALBUTEROL [Concomitant]
     Active Substance: ALBUTEROL
     Dosage: 2.5 MG
     Route: 055
     Dates: start: 20170616, end: 20170618
  94. ALBUTEROL [Concomitant]
     Active Substance: ALBUTEROL
     Dosage: 3 MG
     Route: 065
     Dates: start: 20160822, end: 20160908
  95. ALBUTEROL [Concomitant]
     Active Substance: ALBUTEROL
     Dosage: 2.5 MG
     Dates: start: 20160822, end: 20160908
  96. ALBUTEROL [Concomitant]
     Active Substance: ALBUTEROL
     Dosage: 3 MG
     Route: 055
     Dates: start: 20170616, end: 20170618
  97. ALBUTEROL [Concomitant]
     Active Substance: ALBUTEROL
     Dosage: UNK
     Route: 055
     Dates: start: 20160822, end: 20160908
  98. SULFAMETHOXAZOLE\TRIMETHOPRIM [Concomitant]
     Active Substance: SULFAMETHOXAZOLE\TRIMETHOPRIM
     Indication: Product used for unknown indication
     Dosage: 2112 MG
     Route: 042
     Dates: start: 20160811, end: 20160816
  99. ZOPICLONE [Concomitant]
     Active Substance: ZOPICLONE
     Indication: Product used for unknown indication
     Dosage: 3.75 MG
     Route: 048
     Dates: start: 20170618, end: 20170619
  100. ZOPICLONE [Concomitant]
     Active Substance: ZOPICLONE
     Dosage: 4 MG
     Route: 048
     Dates: start: 20170618, end: 20170619
  101. ORAMORPH SR SUSTAINED RELEASE [Concomitant]
     Active Substance: MORPHINE SULFATE
     Dosage: 2.5 MG
     Route: 048
     Dates: start: 20160828
  102. ORAMORPH SR SUSTAINED RELEASE [Concomitant]
     Active Substance: MORPHINE SULFATE
     Dosage: 15 MG, BID (EVERY 12 HOUR/15 MG, BID)
     Route: 048
     Dates: start: 20180213, end: 20180217
  103. SODIUM CHLORIDE [Concomitant]
     Active Substance: SODIUM CHLORIDE
     Dosage: 5 ML, Q4W
     Route: 055
     Dates: start: 20170616, end: 20170623
  104. C OXACIN [CIPROFLOXACIN HYDROCHLORIDE] [Concomitant]
     Dosage: 15 MG, QD
     Route: 048
  105. CIPROFLOXACIN [Concomitant]
     Active Substance: CIPROFLOXACIN
     Indication: Product used for unknown indication
     Dosage: UNK UNK, QD
     Route: 065
     Dates: start: 20161009, end: 20161009
  106. CIPROFLOXACIN [Concomitant]
     Active Substance: CIPROFLOXACIN
     Dosage: UNK (START 09-OCT-2016)
     Dates: end: 20161009
  107. CLARITHROMYCIN [Concomitant]
     Active Substance: CLARITHROMYCIN
     Dosage: 500 MG
     Route: 048
     Dates: start: 20180214, end: 20180301
  108. CLARITHROMYCIN [Concomitant]
     Active Substance: CLARITHROMYCIN
     Dosage: 500 MILLIGRAM (START 14-FEB-2018)
     Route: 048
     Dates: end: 20180301
  109. CODEINE [Concomitant]
     Active Substance: CODEINE
     Indication: Product used for unknown indication
     Dosage: 10 ML
     Route: 048
     Dates: start: 20170619, end: 20170619
  110. CYCLIZINE [Concomitant]
     Active Substance: CYCLIZINE
     Indication: Product used for unknown indication
     Dosage: 50 MG, TID, (3/DAY)
     Route: 048
     Dates: start: 20170902
  111. CYCLIZINE [Concomitant]
     Active Substance: CYCLIZINE
     Dosage: 150 MG, QD
     Route: 048
     Dates: start: 20170902
  112. CYCLIZINE [Concomitant]
     Active Substance: CYCLIZINE
     Dosage: 50 MILLIGRAM, TID (50 MILLIGRAM 3/DAY, START 02-SEP-2017 )
     Route: 048
  113. CYCLIZINE [Concomitant]
     Active Substance: CYCLIZINE
     Dosage: (50 MILLIGRAM, TID (50 MILLIGRAM 3/DAY, START 02-SEP-2017)
     Route: 048
     Dates: start: 20170902
  114. DOCUSATE [Concomitant]
     Active Substance: DOCUSATE
     Dosage: 20 MG, QD
     Route: 048
     Dates: start: 20160722, end: 20160724
  115. GENTAMICIN [Concomitant]
     Active Substance: GENTAMICIN
     Indication: Product used for unknown indication
     Dosage: 375 MG, QD
     Route: 042
     Dates: start: 20161009, end: 20161009
  116. GENTAMICIN [Concomitant]
     Active Substance: GENTAMICIN
     Dosage: 400 MG, BID
     Route: 042
     Dates: start: 20180212, end: 20180212
  117. GENTAMICIN [Concomitant]
     Active Substance: GENTAMICIN
     Dosage: 800 MG (400 MG, BID)
     Route: 042
     Dates: start: 20180212, end: 20180212
  118. GENTAMICIN [Concomitant]
     Active Substance: GENTAMICIN
     Dosage: 400 MG, BID
     Route: 042
     Dates: start: 20180212, end: 20180212
  119. LANSOPRAZOLE [Concomitant]
     Active Substance: LANSOPRAZOLE
     Indication: Product used for unknown indication
     Dosage: 30 MG, QD
     Route: 048
     Dates: start: 20160809
  120. LANSOPRAZOLE [Concomitant]
     Active Substance: LANSOPRAZOLE
     Dosage: 30 MG, QD
     Route: 048
     Dates: start: 20161010
  121. LANSOPRAZOLE [Concomitant]
     Active Substance: LANSOPRAZOLE
     Dosage: 30 MG, QD
     Route: 048
     Dates: start: 20160722, end: 20160724
  122. LEVOFLOXACIN [Concomitant]
     Active Substance: LEVOFLOXACIN
     Indication: Product used for unknown indication
     Dosage: UNK
     Route: 065
     Dates: start: 20161009, end: 20161017
  123. ONDANSETRON [Concomitant]
     Active Substance: ONDANSETRON
     Indication: Product used for unknown indication
     Dosage: 8 MG, TID, (3/D)
     Route: 048
     Dates: start: 20170902
  124. ONDANSETRON [Concomitant]
     Active Substance: ONDANSETRON
     Dosage: 8 MG, (3/D)
     Route: 065
     Dates: start: 20170616, end: 20170626
  125. ONDANSETRON [Concomitant]
     Active Substance: ONDANSETRON
     Dosage: 8 MG, TID
     Route: 048
     Dates: start: 20170616, end: 20170626
  126. ONDANSETRON [Concomitant]
     Active Substance: ONDANSETRON
     Dosage: 8 MG, TID
     Route: 048
     Dates: start: 20170616, end: 20170626
  127. ONDANSETRON [Concomitant]
     Active Substance: ONDANSETRON
     Dosage: 24 MG, QD (8 MG, TID)
     Route: 048
     Dates: start: 20170616, end: 20170626
  128. OSELTAMIVIR [Concomitant]
     Active Substance: OSELTAMIVIR
     Indication: Product used for unknown indication
     Dosage: 15 MG, BID
     Route: 048
     Dates: start: 20180213, end: 20180217
  129. OSELTAMIVIR [Concomitant]
     Active Substance: OSELTAMIVIR
     Dosage: 30 MG, QD
     Route: 065
     Dates: start: 20180213, end: 20180217
  130. ACETAMINOPHEN [Concomitant]
     Active Substance: ACETAMINOPHEN
     Indication: Product used for unknown indication
     Dosage: 1 G, QD
     Route: 048
     Dates: start: 20160722, end: 20160724
  131. ACETAMINOPHEN [Concomitant]
     Active Substance: ACETAMINOPHEN
     Dosage: 5 G
     Route: 048
     Dates: start: 20160803
  132. ACETAMINOPHEN [Concomitant]
     Active Substance: ACETAMINOPHEN
     Dosage: 1 G
     Route: 048
     Dates: start: 20170903
  133. ACETAMINOPHEN [Concomitant]
     Active Substance: ACETAMINOPHEN
     Dosage: 1 MG
     Route: 048
     Dates: start: 20160723, end: 20160724
  134. ACETAMINOPHEN [Concomitant]
     Active Substance: ACETAMINOPHEN
     Dosage: UNK
     Route: 065
     Dates: start: 20160803
  135. RAMIPRIL [Concomitant]
     Active Substance: RAMIPRIL
     Indication: Product used for unknown indication
     Dosage: 2.3 MG, QD
     Route: 048
     Dates: start: 20160722
  136. RAMIPRIL [Concomitant]
     Active Substance: RAMIPRIL
     Dosage: 2.3 MG
     Route: 065
  137. SODIUM CHLORIDE [Concomitant]
     Active Substance: SODIUM CHLORIDE
     Dosage: 58.75 ML
     Route: 042
     Dates: start: 20180212, end: 20180214
  138. SODIUM CHLORIDE [Concomitant]
     Active Substance: SODIUM CHLORIDE
     Dosage: 5 ML, Q4W
     Route: 055
     Dates: start: 20170616, end: 20170623
  139. SODIUM CHLORIDE [Concomitant]
     Active Substance: SODIUM CHLORIDE
     Dosage: 58.75 ML
     Route: 048
     Dates: start: 20180105, end: 20180105
  140. VANCOMYCIN [Concomitant]
     Active Substance: VANCOMYCIN
     Indication: Product used for unknown indication
     Dosage: UNK MG QD
     Route: 048
     Dates: start: 20161009, end: 20161009
  141. DEXAMETHASONE [Concomitant]
     Active Substance: DEXAMETHASONE
     Dosage: 1 DF, QD
     Route: 048
     Dates: start: 20160805, end: 201609
  142. DEXAMETHASONE [Concomitant]
     Active Substance: DEXAMETHASONE
     Dosage: 4 MG, QD
     Route: 048
     Dates: start: 20180110
  143. DEXAMETHASONE [Concomitant]
     Active Substance: DEXAMETHASONE
     Dosage: 8 MG, QD
     Route: 042
     Dates: start: 20160803, end: 20160805
  144. DEXAMETHASONE [Concomitant]
     Active Substance: DEXAMETHASONE
     Dosage: 2 MG, QD
     Route: 048
     Dates: start: 20170902, end: 20180110
  145. DEXAMETHASONE [Concomitant]
     Active Substance: DEXAMETHASONE
     Dosage: 4 MG, BID
     Route: 048
     Dates: start: 20170616, end: 20170902
  146. DEXAMETHASONE [Concomitant]
     Active Substance: DEXAMETHASONE
     Dosage: 8 MG
     Route: 042
     Dates: start: 20170616, end: 20170616
  147. DEXAMETHASONE [Concomitant]
     Active Substance: DEXAMETHASONE
     Dosage: 2 MG, QD
     Route: 048
     Dates: start: 20200111
  148. DEXAMETHASONE [Concomitant]
     Active Substance: DEXAMETHASONE
     Dosage: 8 MG, QD
     Route: 048
     Dates: start: 20160610, end: 20160611
  149. DEXAMETHASONE [Concomitant]
     Active Substance: DEXAMETHASONE
     Dosage: 4 MG, BID
     Route: 048
     Dates: start: 20160722, end: 20160723
  150. DEXAMETHASONE [Concomitant]
     Active Substance: DEXAMETHASONE
     Dosage: 1 DF, QD
     Route: 048
     Dates: start: 20190805, end: 201909
  151. BENZYDAMINE HYDROCHLORIDE [Concomitant]
     Active Substance: BENZYDAMINE HYDROCHLORIDE
     Indication: Product used for unknown indication
     Dosage: UNK, QD
     Route: 048
     Dates: start: 20160722, end: 20160723
  152. TRIMETHOPRIM [Concomitant]
     Active Substance: TRIMETHOPRIM
     Dosage: 50 MG, TID
     Route: 065
     Dates: start: 20170902
  153. TRIMETHOPRIM [Concomitant]
     Active Substance: TRIMETHOPRIM
     Dosage: 483 MG, QD
     Route: 048
     Dates: start: 20180131, end: 20180131
  154. TRIMETHOPRIM [Concomitant]
     Active Substance: TRIMETHOPRIM
     Dosage: 2112 MG
     Route: 042
     Dates: start: 20160811, end: 20160816
  155. CLARITHROMYCIN LACTOBIONATE [Concomitant]
     Active Substance: CLARITHROMYCIN LACTOBIONATE
     Dosage: 500 MG
     Route: 048
     Dates: start: 20180214, end: 20180301
  156. DEXAMETHASONE [Concomitant]
     Active Substance: DEXAMETHASONE
     Dosage: 8 MG, QD
     Dates: start: 20160803, end: 20160805
  157. DEXAMETHASONE [Concomitant]
     Active Substance: DEXAMETHASONE
     Dosage: 1 DF
     Route: 048
     Dates: start: 20160805, end: 201609
  158. DEXAMETHASONE [Concomitant]
     Active Substance: DEXAMETHASONE
     Dosage: 40 MG, BID
     Route: 048
     Dates: start: 20160722, end: 20160723
  159. DEXAMETHASONE [Concomitant]
     Active Substance: DEXAMETHASONE
     Dosage: 8 UNK
     Dates: start: 20160610, end: 20160611
  160. DEXAMETHASONE [Concomitant]
     Active Substance: DEXAMETHASONE
     Dosage: 2 MG, QD
     Dates: start: 20170902, end: 20180110
  161. DEXAMETHASONE [Concomitant]
     Active Substance: DEXAMETHASONE
     Dosage: 4 MG, BID
     Route: 048
     Dates: start: 20170616, end: 20170902
  162. DEXAMETHASONE [Concomitant]
     Active Substance: DEXAMETHASONE
     Dosage: 4 MG, QD
     Route: 048
     Dates: start: 20180110
  163. DEXAMETHASONE [Concomitant]
     Active Substance: DEXAMETHASONE
     Dosage: 8 UNK
     Route: 042
     Dates: start: 20170616, end: 20170616
  164. DEXAMETHASONE [Concomitant]
     Active Substance: DEXAMETHASONE
     Dosage: 2 MG, QD
     Route: 048
     Dates: start: 20200111
  165. PIPERACILLIN SODIUM\TAZOBACTAM SODIUM [Concomitant]
     Active Substance: PIPERACILLIN SODIUM\TAZOBACTAM SODIUM
     Indication: Product used for unknown indication
     Dosage: 4.5 MG, TID (3/D)
     Route: 048
     Dates: start: 20180212, end: 20180214
  166. PIPERACILLIN SODIUM\TAZOBACTAM SODIUM [Concomitant]
     Active Substance: PIPERACILLIN SODIUM\TAZOBACTAM SODIUM
     Dosage: 13.5 G
     Route: 048
     Dates: start: 20180212, end: 20180214
  167. CO AMOXICLAV [AMOXICILLIN SODIUM;CLAVULANATE POTASSIUM] [Concomitant]
     Dosage: 625 MG, TID
     Dates: start: 20180215, end: 20180301
  168. CO AMOXICLAV [AMOXICILLIN SODIUM;CLAVULANATE POTASSIUM] [Concomitant]
     Dosage: 1.2 G, BID
     Route: 042
     Dates: start: 20180214, end: 20180214
  169. CO AMOXICLAV [AMOXICILLIN SODIUM;CLAVULANATE POTASSIUM] [Concomitant]
     Dosage: 2.4 G, QD
     Route: 042
     Dates: start: 20180214, end: 20180301
  170. CO AMOXICLAV [AMOXICILLIN SODIUM;CLAVULANATE POTASSIUM] [Concomitant]
     Dosage: 1875 G, QD
     Route: 042
     Dates: start: 20180215, end: 20180301
  171. TAMOXIFEN [Concomitant]
     Active Substance: TAMOXIFEN
     Dosage: UNK
  172. ENOXAPARIN [Concomitant]
     Active Substance: ENOXAPARIN
     Dosage: 40 MG, QD
     Route: 058
     Dates: start: 20160817, end: 20160914
  173. ENOXAPARIN [Concomitant]
     Active Substance: ENOXAPARIN
     Dosage: UNK
  174. ENOXAPARIN [Concomitant]
     Active Substance: ENOXAPARIN
     Dosage: 40 MG, QD
     Route: 058
     Dates: start: 20180105, end: 20180117
  175. ENOXAPARIN [Concomitant]
     Active Substance: ENOXAPARIN
     Dosage: 120 MG, QD
     Route: 058
     Dates: start: 20180212, end: 20180212
  176. ENOXAPARIN [Concomitant]
     Active Substance: ENOXAPARIN
     Dosage: 40 MG, QD
     Route: 058
     Dates: start: 20180214, end: 20180218
  177. ENOXAPARIN [Concomitant]
     Active Substance: ENOXAPARIN
     Dosage: 1200 MG, QD (CUMULATIVE DOSE: 684050.0 MG)
     Route: 058
     Dates: start: 20180212, end: 20180212
  178. ENOXAPARIN [Concomitant]
     Active Substance: ENOXAPARIN
     Dosage: 40 MG, QD
     Route: 058
     Dates: start: 20170616, end: 20170623
  179. ENOXAPARIN [Concomitant]
     Active Substance: ENOXAPARIN
     Dosage: 40 MG, QD
     Route: 058
     Dates: start: 20180212, end: 20180212
  180. PIPERACILLIN SODIUM [Concomitant]
     Active Substance: PIPERACILLIN SODIUM
     Indication: Product used for unknown indication
     Dosage: 4.5 MG, TID
     Route: 065
     Dates: start: 20180212, end: 20180214
  181. PIPERACILLIN SODIUM [Concomitant]
     Active Substance: PIPERACILLIN SODIUM
     Dosage: 13.5 MG, QD
     Route: 065
     Dates: start: 20180212, end: 20180214
  182. CODEINE PHOSPHATE [Concomitant]
     Active Substance: CODEINE PHOSPHATE
     Dosage: 10 ML
     Route: 048
     Dates: start: 20170619, end: 20170619
  183. HERBALS\SENNOSIDES [Concomitant]
     Active Substance: HERBALS\SENNOSIDES
     Dosage: 15 MG, QD
     Dates: start: 20160722
  184. AMOXICILLIN\CLAVULANATE POTASSIUM [Concomitant]
     Active Substance: AMOXICILLIN\CLAVULANATE POTASSIUM
     Dosage: 625 MILLIGRAM, TID (625 MILLIGRAM 3/DAY) (START 15-FEB-2018)
     Dates: start: 20180215, end: 20180301
  185. AMOXICILLIN\CLAVULANATE POTASSIUM [Concomitant]
     Active Substance: AMOXICILLIN\CLAVULANATE POTASSIUM
     Dosage: 2.4 G, BID (START 14-FEB-2018)
     Route: 042
     Dates: start: 20180214, end: 20180214
  186. AMOXICILLIN\CLAVULANATE POTASSIUM [Concomitant]
     Active Substance: AMOXICILLIN\CLAVULANATE POTASSIUM
     Dosage: 1875 MG, QD (START 14-FEB-2018)
     Dates: start: 20180214, end: 20180214
  187. AMOXICILLIN\CLAVULANATE POTASSIUM [Concomitant]
     Active Substance: AMOXICILLIN\CLAVULANATE POTASSIUM
     Dosage: 2.4 MG, QD [1.2 GRAM, BID (START 14-FEB-2018)]
     Route: 042
     Dates: start: 20180214, end: 20180214
  188. AMOXICILLIN\CLAVULANATE POTASSIUM [Concomitant]
     Active Substance: AMOXICILLIN\CLAVULANATE POTASSIUM
     Dosage: 1875 MG, QD (START 15-FEB-2018)
     Dates: start: 20180215, end: 20180301
  189. AMOXICILLIN\CLAVULANATE POTASSIUM [Concomitant]
     Active Substance: AMOXICILLIN\CLAVULANATE POTASSIUM
     Dosage: 4.8 G (1.2 GRAM, BID (START 14-FEB-2018)
     Route: 042
  190. AMOXICILLIN\CLAVULANATE POTASSIUM [Concomitant]
     Active Substance: AMOXICILLIN\CLAVULANATE POTASSIUM
     Dosage: 625 MG, TID (625 MILLIGRAM, 3/DAY)
     Dates: start: 20180215, end: 20180301
  191. AMOXICILLIN\CLAVULANATE POTASSIUM [Concomitant]
     Active Substance: AMOXICILLIN\CLAVULANATE POTASSIUM
     Dosage: 1875 MG, QD (START 15-FEB-2018)
     Dates: start: 20180215, end: 20180301
  192. AMOXICILLIN\CLAVULANATE POTASSIUM [Concomitant]
     Active Substance: AMOXICILLIN\CLAVULANATE POTASSIUM
     Dosage: 1.2 G, BID
     Route: 048
     Dates: start: 20180214, end: 20180214
  193. ENOXAPARIN SODIUM [Concomitant]
     Active Substance: ENOXAPARIN SODIUM
     Indication: Product used for unknown indication
     Dosage: 110 MG, QD
     Route: 058
     Dates: start: 20160825, end: 20160914
  194. ENOXAPARIN SODIUM [Concomitant]
     Active Substance: ENOXAPARIN SODIUM
     Dosage: 40 MG, QD
     Dates: start: 20160723, end: 20160723
  195. SENNA LEAF [Concomitant]
     Active Substance: SENNA LEAF
     Indication: Product used for unknown indication
     Dosage: 15 MG, QD
     Route: 065
     Dates: start: 20160722
  196. CHLORPHENIRAMINE MALEATE [Concomitant]
     Active Substance: CHLORPHENIRAMINE MALEATE
     Dosage: 10 MG, QD
     Route: 042
     Dates: start: 20160907, end: 20160907
  197. CHLORPHENIRAMINE MALEATE [Concomitant]
     Active Substance: CHLORPHENIRAMINE MALEATE
     Dosage: 10 MG
     Route: 042
     Dates: start: 20160928, end: 20170724

REACTIONS (27)
  - Disease progression [Fatal]
  - Excessive eye blinking [Recovered/Resolved]
  - Excessive eye blinking [Recovered/Resolved]
  - Pain in jaw [Recovered/Resolved]
  - Pneumonia [Recovered/Resolved]
  - Vomiting [Recovered/Resolved]
  - Vomiting [Not Recovered/Not Resolved]
  - Hyponatraemia [Recovered/Resolved]
  - Lower respiratory tract infection [Recovered/Resolved]
  - Lower respiratory tract infection [Recovered/Resolved]
  - Pneumonia [Recovered/Resolved]
  - Nausea [Recovered/Resolved]
  - Nausea [Recovered/Resolved]
  - Nausea [Recovered/Resolved]
  - Diarrhoea [Recovered/Resolved]
  - Vomiting [Recovered/Resolved]
  - Nausea [Not Recovered/Not Resolved]
  - Lower respiratory tract infection [Recovered/Resolved]
  - Pneumonia [Recovered/Resolved]
  - Hyponatraemia [Not Recovered/Not Resolved]
  - Diarrhoea [Recovered/Resolved]
  - Chest pain [Not Recovered/Not Resolved]
  - Off label use [Unknown]
  - Pain in jaw [Recovered/Resolved]
  - Ejection fraction decreased [Unknown]
  - Condition aggravated [Unknown]
  - Nausea [Not Recovered/Not Resolved]

NARRATIVE: CASE EVENT DATE: 20160722
